FAERS Safety Report 4556211-8 (Version None)
Quarter: 2005Q1

REPORT INFORMATION
  Report Type: 
  Country: None (occurrence: None)
  Receive Date: 20050119
  Receipt Date: 20050113
  Transmission Date: 20050727
  Serious: Yes (Hospitalization)
  Sender: FDA-Public Use
  Company Number: GB-MERCK-0501GBR00156

PATIENT
  Age: 70 Year
  Sex: Male

DRUGS (5)
  1. SINGULAIR [Suspect]
     Indication: CHRONIC OBSTRUCTIVE PULMONARY DISEASE
     Route: 048
     Dates: start: 20031001, end: 20040101
  2. RAMIPRIL [Concomitant]
     Indication: HYPERTENSION
     Route: 065
  3. ISOSORBIDE MONONITRATE [Concomitant]
     Route: 065
  4. OXYBUTYNIN CHLORIDE [Concomitant]
     Route: 065
  5. HYDROXYUREA [Suspect]
     Indication: LEUKOCYTOSIS
     Route: 065

REACTIONS (6)
  - BONE MARROW DISORDER [None]
  - FEELING ABNORMAL [None]
  - LEUKOCYTOSIS [None]
  - MYELOCYTE COUNT DECREASED [None]
  - NEUTROPHILIA [None]
  - WHITE BLOOD CELL COUNT DECREASED [None]
